FAERS Safety Report 4447573-0 (Version None)
Quarter: 2004Q3

REPORT INFORMATION
  Report Type: 
  Country: None (occurrence: None)
  Receive Date: 20040812
  Receipt Date: 20040719
  Transmission Date: 20050211
  Serious: No
  Sender: FDA-Public Use
  Company Number: USA040771701

PATIENT
  Age: 73 Year
  Sex: Male
  Weight: 84 kg

DRUGS (8)
  1. CIALIS [Suspect]
     Indication: ERECTILE DYSFUNCTION
     Dosage: 20 MG AS NEEDED
     Dates: start: 20040301
  2. VITAMIN C [Concomitant]
  3. VITAMIN E [Concomitant]
  4. CLARITIN [Concomitant]
  5. MUCINEX(GUAIFENESIN) [Concomitant]
  6. PRILOSEC [Concomitant]
  7. FLOMAX [Concomitant]
  8. AVODART [Concomitant]

REACTIONS (4)
  - DEPRESSION [None]
  - DRUG INEFFECTIVE [None]
  - LOSS OF LIBIDO [None]
  - MUSCLE CRAMP [None]
